FAERS Safety Report 4897332-X (Version None)
Quarter: 2005Q4

REPORT INFORMATION
  Report Type: 
  Country: None (occurrence: None)
  Receive Date: 20051223
  Receipt Date: 20050902
  Transmission Date: 20060501
  Serious: No
  Sender: FDA-Public Use
  Company Number: 05P-163-0310285-00

PATIENT
  Age: 68 Year
  Sex: Female
  Weight: 90.7194 kg

DRUGS (11)
  1. HUMIRA [Suspect]
     Indication: RHEUMATOID ARTHRITIS
     Dosage: 40 MG, 1 IN 2 WK, SUBCUTANEOUS
     Route: 058
     Dates: start: 20030101, end: 20050801
  2. HYDROCHLOROTHIAZIDE [Concomitant]
  3. L-THYROXINE [Concomitant]
  4. PREDNISONE [Concomitant]
  5. FUROSEMIDE [Concomitant]
  6. ATENOLOL [Concomitant]
  7. WARFARIN [Concomitant]
  8. METHOTREXATE [Concomitant]
  9. GEMFIBROZIL [Concomitant]
  10. METFORMIN HYDROCHLORIDE [Concomitant]
  11. CLORACON [Concomitant]

REACTIONS (2)
  - LOCALISED INFECTION [None]
  - SKIN LESION [None]
